FAERS Safety Report 9817831 (Version 1)
Quarter: 2014Q1

REPORT INFORMATION
  Report Type: Spontaneous
  Country: ES (occurrence: ES)
  Receive Date: 20140115
  Receipt Date: 20140115
  Transmission Date: 20141002
  Serious: Yes (Other)
  Sender: FDA-Public Use
  Company Number: ES-ROCHE-1333553

PATIENT
  Age: 62 Year
  Sex: Male

DRUGS (2)
  1. OSELTAMIVIR [Suspect]
     Indication: INFLUENZA
     Route: 042
     Dates: start: 20140113, end: 20140113
  2. PARACETAMOL [Concomitant]

REACTIONS (2)
  - Medication error [Unknown]
  - No adverse event [Unknown]
